FAERS Safety Report 4423322-7 (Version None)
Quarter: 2004Q3

REPORT INFORMATION
  Report Type: 
  Country: None (occurrence: None)
  Receive Date: 20040805
  Receipt Date: 20040726
  Transmission Date: 20050211
  Serious: Yes (Other)
  Sender: FDA-Public Use
  Company Number: 2004225950US

PATIENT
  Sex: Male
  Weight: 72.6 kg

DRUGS (3)
  1. BEXTRA [Suspect]
     Indication: INFLAMMATION
     Dosage: 20 MG, BID ,ORAL
     Route: 048
  2. LOTREL [Concomitant]
  3. NIOXIN [Concomitant]

REACTIONS (11)
  - ALOPECIA [None]
  - CERVICAL VERTEBRAL FRACTURE [None]
  - DEPRESSION [None]
  - ERECTILE DYSFUNCTION [None]
  - EXOSTOSIS [None]
  - HEADACHE [None]
  - HYPERTENSION [None]
  - PAIN [None]
  - REFUSAL OF TREATMENT BY PATIENT [None]
  - ROAD TRAFFIC ACCIDENT [None]
  - UPPER LIMB FRACTURE [None]
